FAERS Safety Report 8804888 (Version 2)
Quarter: 2015Q2

REPORT INFORMATION
  Report Type: Report from Study
  Country: US (occurrence: US)
  Receive Date: 20120924
  Receipt Date: 20150616
  Transmission Date: 20150821
  Serious: Yes (Death)
  Sender: FDA-Public Use
  Company Number: US-ROCHE-1092913

PATIENT
  Sex: Female
  Weight: 70.37 kg

DRUGS (24)
  1. AVASTIN [Suspect]
     Active Substance: BEVACIZUMAB
     Indication: BREAST CANCER FEMALE
     Route: 042
     Dates: start: 20070328
  2. AVASTIN [Suspect]
     Active Substance: BEVACIZUMAB
     Route: 042
  3. ZYRTEC [Concomitant]
     Active Substance: CETIRIZINE HYDROCHLORIDE
     Route: 048
  4. HERCEPTIN [Suspect]
     Active Substance: TRASTUZUMAB
     Dosage: LOADING DOSE 340 MG
     Route: 042
  5. HERCEPTIN [Suspect]
     Active Substance: TRASTUZUMAB
     Dosage: MAINTAINANCE DOSE 168 MG
     Route: 042
  6. NAVELBINE [Concomitant]
     Active Substance: VINORELBINE TARTRATE
     Route: 065
  7. ZOFRAN [Concomitant]
     Active Substance: ONDANSETRON HYDROCHLORIDE
     Route: 042
  8. TAXOTERE [Concomitant]
     Active Substance: DOCETAXEL
     Route: 065
  9. AVASTIN [Suspect]
     Active Substance: BEVACIZUMAB
     Route: 042
  10. HERCEPTIN [Suspect]
     Active Substance: TRASTUZUMAB
     Route: 042
  11. DECADRON [Concomitant]
     Active Substance: DEXAMETHASONE
     Route: 042
  12. HERCEPTIN [Suspect]
     Active Substance: TRASTUZUMAB
     Route: 042
  13. HERCEPTIN [Suspect]
     Active Substance: TRASTUZUMAB
     Dosage: 340 MG LOADING DOSE
     Route: 042
  14. DECADRON [Concomitant]
     Active Substance: DEXAMETHASONE
     Route: 042
  15. BENADRYL [Concomitant]
     Active Substance: DIPHENHYDRAMINE HYDROCHLORIDE
     Route: 048
  16. HERCEPTIN [Suspect]
     Active Substance: TRASTUZUMAB
     Route: 042
  17. ARANESP [Concomitant]
     Active Substance: DARBEPOETIN ALFA
     Route: 065
  18. ZOMETA [Concomitant]
     Active Substance: ZOLEDRONIC ACID
     Route: 042
  19. HERCEPTIN [Suspect]
     Active Substance: TRASTUZUMAB
     Route: 042
  20. DECADRON [Concomitant]
     Active Substance: DEXAMETHASONE
     Route: 042
  21. TYLENOL [Concomitant]
     Active Substance: ACETAMINOPHEN
     Route: 048
  22. PROCRIT [Concomitant]
     Active Substance: ERYTHROPOIETIN
     Route: 058
  23. PROCRIT [Concomitant]
     Active Substance: ERYTHROPOIETIN
     Route: 058
  24. HERCEPTIN [Suspect]
     Active Substance: TRASTUZUMAB
     Indication: BREAST CANCER FEMALE
     Dosage: LOADING DOSE 340 MG
     Route: 042
     Dates: start: 20060726

REACTIONS (2)
  - Off label use [Unknown]
  - Death [Fatal]
